FAERS Safety Report 10519390 (Version 9)
Quarter: 2017Q1

REPORT INFORMATION
  Report Type: Report from Study
  Country: US (occurrence: US)
  Receive Date: 20141015
  Receipt Date: 20170131
  Transmission Date: 20170428
  Serious: Yes (Hospitalization, Other)
  Sender: FDA-Public Use
  Company Number: US-ACTELION-A-NJ2014-104533

PATIENT
  Age: 38 Year
  Sex: Female

DRUGS (7)
  1. VELETRI [Suspect]
     Active Substance: EPOPROSTENOL
     Dosage: 13.4 NG/KG, PER MIN
     Route: 042
  2. VELETRI [Suspect]
     Active Substance: EPOPROSTENOL
     Dosage: 7.9 NG/KG, PER MIN
     Route: 042
  3. WARFARIN [Concomitant]
     Active Substance: WARFARIN
  4. ADEMPAS [Suspect]
     Active Substance: RIOCIGUAT
     Indication: PULMONARY ARTERIAL HYPERTENSION
     Dosage: 1.5 MG, TID
     Route: 048
     Dates: start: 20150110
  5. VELETRI [Suspect]
     Active Substance: EPOPROSTENOL
     Indication: PULMONARY HYPERTENSION
     Dosage: 30 NG/KG, PER MIN
     Route: 042
  6. VELETRI [Suspect]
     Active Substance: EPOPROSTENOL
     Dosage: 7 NG/KG, PER MIN
     Route: 042
     Dates: start: 20140711
  7. VELETRI [Suspect]
     Active Substance: EPOPROSTENOL
     Dosage: 9.6 NG/KG, PER MIN
     Route: 042
     Dates: start: 20140716

REACTIONS (14)
  - Dizziness [Unknown]
  - Fatigue [Unknown]
  - Dyspnoea exertional [Unknown]
  - Pulmonary embolism [Unknown]
  - Nausea [Unknown]
  - Dyspnoea [Unknown]
  - Endarterectomy [Unknown]
  - Palpitations [Unknown]
  - Hypotension [Unknown]
  - Weight decreased [Unknown]
  - Headache [Unknown]
  - Oedema peripheral [Unknown]
  - Embolism venous [Unknown]
  - Thrombosis [Unknown]

NARRATIVE: CASE EVENT DATE: 201408
